FAERS Safety Report 5164363-4 (Version None)
Quarter: 2006Q4

REPORT INFORMATION
  Report Type: 
  Country: None (occurrence: None)
  Receive Date: 20061129
  Receipt Date: 20061129
  Transmission Date: 20070319
  Serious: Yes (Other)
  Sender: FDA-Public Use
  Company Number: None

PATIENT
  Age: 49 Year
  Sex: Male
  Weight: 140.6151 kg

DRUGS (1)
  1. CIPROFLOXACIN HCL [Suspect]
     Indication: PROSTATITIS
     Dosage: 500MG TAB  TWICE DAILY  PO
     Route: 048
     Dates: start: 20061110, end: 20061117

REACTIONS (3)
  - ANGIOPATHY [None]
  - GROIN PAIN [None]
  - PAIN IN EXTREMITY [None]
